FAERS Safety Report 14976522 (Version 2)
Quarter: 2018Q4

REPORT INFORMATION
  Report Type: Spontaneous
  Country: US (occurrence: US)
  Receive Date: 20180605
  Receipt Date: 20181210
  Transmission Date: 20190204
  Serious: Yes (Death, Other)
  Sender: FDA-Public Use
  Company Number: PHEH2018US020949

PATIENT
  Sex: Female

DRUGS (1)
  1. TASIGNA [Suspect]
     Active Substance: NILOTINIB
     Indication: CHRONIC MYELOID LEUKAEMIA
     Dosage: 300 MG, BID
     Route: 048
     Dates: start: 20120202

REACTIONS (23)
  - Chronic kidney disease [Unknown]
  - Diarrhoea [Unknown]
  - Oedema peripheral [Unknown]
  - Death [Fatal]
  - Gangrene [Unknown]
  - Chronic obstructive pulmonary disease [Unknown]
  - Cardiomegaly [Unknown]
  - Hypothyroidism [Unknown]
  - Anaemia [Not Recovered/Not Resolved]
  - Cough [Unknown]
  - Cardiovascular disorder [Unknown]
  - Dyspnoea [Recovering/Resolving]
  - Alopecia [Unknown]
  - Hypertension [Unknown]
  - Arteriosclerosis [Unknown]
  - Cholelithiasis [Unknown]
  - Abdominal pain [Unknown]
  - Pleural effusion [Unknown]
  - Peripheral arterial occlusive disease [Unknown]
  - Intermittent claudication [Unknown]
  - Pulmonary oedema [Unknown]
  - Asthenia [Unknown]
  - Fatigue [Unknown]
